FAERS Safety Report 7624965-X (Version None)
Quarter: 2011Q3

REPORT INFORMATION
  Report Type: 
  Country: None (occurrence: None)
  Receive Date: 20110721
  Receipt Date: 20110715
  Transmission Date: 20111222
  Serious: Yes (Hospitalization)
  Sender: FDA-Public Use
  Company Number: US-BRISTOL-MYERS SQUIBB COMPANY-15710072

PATIENT
  Age: 80 Year
  Sex: Male
  Weight: 114 kg

DRUGS (13)
  1. TERAZOSIN HCL [Concomitant]
  2. ZYLOPRIM [Concomitant]
  3. COUMADIN [Concomitant]
  4. POTASSIUM [Concomitant]
  5. ATENOLOL [Suspect]
  6. ZYLOPRIM [Concomitant]
  7. OXYCODONE HCL [Suspect]
  8. PACERONE [Concomitant]
  9. DURAGESIC-100 [Concomitant]
  10. IPILIMUMAB [Suspect]
     Indication: MALIGNANT MELANOMA
     Dosage: LAST DOSE ON 20MAY2011, NO OF COURSES:2,CYCLE 21DAYS,10MG/KG OVER 90MIN ON DAY 1 Q12 WEEKS
     Route: 042
     Dates: start: 20110316
  11. DILAUDID [Concomitant]
  12. LASIX [Concomitant]
  13. FEOSOL [Concomitant]

REACTIONS (8)
  - ADRENAL INSUFFICIENCY [None]
  - VENTRICULAR TACHYCARDIA [None]
  - LETHARGY [None]
  - DYSPNOEA [None]
  - MUSCULAR WEAKNESS [None]
  - DYSPHAGIA [None]
  - DEHYDRATION [None]
  - LUNG INFECTION [None]
